FAERS Safety Report 9319422 (Version 1)
Quarter: 2013Q2

REPORT INFORMATION
  Report Type: Spontaneous
  Country: US (occurrence: US)
  Receive Date: 20130530
  Receipt Date: 20130530
  Transmission Date: 20140414
  Serious: No
  Sender: FDA-Public Use
  Company Number: US-GLAXOSMITHKLINE-A0977791A

PATIENT
  Age: 35 Year
  Sex: Female

DRUGS (1)
  1. FLOLAN [Suspect]
     Dosage: 28.41NGKM CONTINUOUS
     Route: 042
     Dates: start: 20100505

REACTIONS (5)
  - Alopecia [Recovering/Resolving]
  - Rash [Unknown]
  - Diarrhoea [Unknown]
  - Device related infection [Unknown]
  - Skin disorder [Unknown]
